FAERS Safety Report 5313318-5 (Version None)
Quarter: 2007Q2

REPORT INFORMATION
  Report Type: 
  Country: None (occurrence: None)
  Receive Date: 20070501
  Receipt Date: 20070426
  Transmission Date: 20071010
  Serious: Yes (Death)
  Sender: FDA-Public Use
  Company Number: PHEH2007US06408

PATIENT
  Age: 74 Year
  Sex: Male

DRUGS (1)
  1. EXJADE [Suspect]
     Indication: MYELODYSPLASTIC SYNDROME
     Dosage: 1000 MG, QD
     Dates: start: 20060701

REACTIONS (7)
  - AORTIC STENOSIS [None]
  - ARTHRALGIA [None]
  - HEADACHE [None]
  - MALAISE [None]
  - MYALGIA [None]
  - MYELODYSPLASTIC SYNDROME [None]
  - NAUSEA [None]
